FAERS Safety Report 23658111 (Version 1)
Quarter: 2024Q1

REPORT INFORMATION
  Report Type: Spontaneous
  Country: US (occurrence: US)
  Receive Date: 20240321
  Receipt Date: 20240321
  Transmission Date: 20240409
  Serious: No
  Sender: FDA-Public Use
  Company Number: US-INNOVIVA SPECIALTY THERAPEUTICS-2024-INNO-US000001

PATIENT

DRUGS (3)
  1. XACDURO [Suspect]
     Active Substance: DURLOBACTAM SODIUM\SULBACTAM SODIUM
     Indication: Osteomyelitis
     Dosage: UNK
  2. XACDURO [Suspect]
     Active Substance: DURLOBACTAM SODIUM\SULBACTAM SODIUM
     Indication: Skin infection
  3. XACDURO [Suspect]
     Active Substance: DURLOBACTAM SODIUM\SULBACTAM SODIUM
     Indication: Acinetobacter infection

REACTIONS (2)
  - Liver function test increased [Recovered/Resolved]
  - Off label use [Unknown]
